FAERS Safety Report 18609854 (Version 3)
Quarter: 2020Q4

REPORT INFORMATION
  Report Type: Spontaneous
  Country: US (occurrence: US)
  Receive Date: 20201214
  Receipt Date: 20201229
  Transmission Date: 20210114
  Serious: No
  Sender: FDA-Public Use
  Company Number: NVSC2020US325404

PATIENT
  Sex: Female
  Weight: 128 kg

DRUGS (4)
  1. MINIVELLE [Suspect]
     Active Substance: ESTRADIOL
     Indication: PREMATURE MENOPAUSE
     Dosage: AFTER TRYING THE UNKNOWN GENERIC
     Route: 065
  2. ESTRADIOL. [Suspect]
     Active Substance: ESTRADIOL
     Indication: PREMATURE MENOPAUSE
     Dosage: 0.05 MG,(1 OR 2 WEEKS)
     Route: 065
  3. VIVELLE-DOT [Suspect]
     Active Substance: ESTRADIOL
     Indication: PREMATURE MENOPAUSE
     Dosage: APPROXIMATELY 5 YEAR AGO
     Route: 065
     Dates: start: 2010
  4. MINIVELLE [Suspect]
     Active Substance: ESTRADIOL
     Dosage: 0.037 MG
     Route: 065

REACTIONS (6)
  - Application site erythema [Unknown]
  - Application site pruritus [Unknown]
  - Application site inflammation [Unknown]
  - Impaired healing [Unknown]
  - Application site irritation [Unknown]
  - Application site rash [Unknown]
